FAERS Safety Report 8444921-1 (Version None)
Quarter: 2012Q2

REPORT INFORMATION
  Report Type: 
  Country: None (occurrence: None)
  Receive Date: 20120618
  Receipt Date: 20120605
  Transmission Date: 20120825
  Serious: Yes (Hospitalization)
  Sender: FDA-Public Use
  Company Number: US-ROCHE-1010031

PATIENT
  Sex: Female

DRUGS (2)
  1. RIBAVIRIN [Suspect]
     Indication: HEPATITIS C
     Route: 048
     Dates: start: 20111028
  2. PEGASYS [Suspect]
     Indication: HEPATITIS C
     Route: 058
     Dates: start: 20111028

REACTIONS (6)
  - UPPER RESPIRATORY TRACT INFECTION [None]
  - LYMPHADENOPATHY [None]
  - PLATELET COUNT DECREASED [None]
  - ALOPECIA [None]
  - HOSPITALISATION [None]
  - WHITE BLOOD CELL COUNT DECREASED [None]
